FAERS Safety Report 7406493-X (Version None)
Quarter: 2011Q2

REPORT INFORMATION
  Report Type: 
  Country: None (occurrence: None)
  Receive Date: 20110405
  Receipt Date: 20110405
  Transmission Date: 20111010
  Serious: Yes (Other)
  Sender: FDA-Public Use
  Company Number: None

PATIENT
  Age: 59 Year
  Sex: Male
  Weight: 70.3075 kg

DRUGS (1)
  1. FLUCONAZOLE [Suspect]
     Indication: MENINGITIS
     Dates: start: 20101201, end: 20110305

REACTIONS (3)
  - HYPERCALCAEMIA [None]
  - ALTERED STATE OF CONSCIOUSNESS [None]
  - RENAL IMPAIRMENT [None]
